FAERS Safety Report 5340716-6 (Version None)
Quarter: 2007Q2

REPORT INFORMATION
  Report Type: 
  Country: None (occurrence: None)
  Receive Date: 20070405
  Receipt Date: 20061218
  Transmission Date: 20071010
  Serious: No
  Sender: FDA-Public Use
  Company Number: US200612003266

PATIENT
  Age: 60 Year
  Sex: Female

DRUGS (7)
  1. CYMBALTA [Suspect]
     Indication: DEPRESSION
     Dosage: 30 MG, EACH MORNING
     Dates: start: 20061217, end: 20061218
  2. NEURONTIN [Concomitant]
  3. ASPIRIN [Concomitant]
  4. DARVOCET-N (DEXTROPROPOXYPHENE NAPSILATE) [Concomitant]
  5. BENICAR /USA/ (OLMESARTAN MEDOXOMIL) [Concomitant]
  6. ATENOLOL [Concomitant]
  7. LEVOFLOXACIN [Concomitant]

REACTIONS (11)
  - ABNORMAL DREAMS [None]
  - ASTHENIA [None]
  - EYE IRRITATION [None]
  - EYE OEDEMA [None]
  - FATIGUE [None]
  - HEADACHE [None]
  - INSOMNIA [None]
  - LETHARGY [None]
  - NAUSEA [None]
  - PAIN [None]
  - VISION BLURRED [None]
